FAERS Safety Report 26157879 (Version 1)
Quarter: 2025Q4

REPORT INFORMATION
  Report Type: Spontaneous
  Country: AU (occurrence: AU)
  Receive Date: 20251215
  Receipt Date: 20251215
  Transmission Date: 20260117
  Serious: Yes (Life-Threatening, Hospitalization)
  Sender: MYLAN
  Company Number: AU-MYLANLABS-2025M1106700

PATIENT
  Age: 55 Year
  Sex: Male

DRUGS (32)
  1. AMLODIPINE [Suspect]
     Active Substance: AMLODIPINE BESYLATE
     Indication: Hypertension
     Dosage: UNK
     Route: 065
  2. AMLODIPINE [Suspect]
     Active Substance: AMLODIPINE BESYLATE
     Dosage: UNK
  3. AMLODIPINE [Suspect]
     Active Substance: AMLODIPINE BESYLATE
     Dosage: UNK
  4. AMLODIPINE [Suspect]
     Active Substance: AMLODIPINE BESYLATE
     Dosage: UNK
     Route: 065
  5. AMLODIPINE [Suspect]
     Active Substance: AMLODIPINE BESYLATE
     Dosage: UNK, INITIALLY DISCONTINUED AND THEN RESTARTED
     Route: 065
  6. AMLODIPINE [Suspect]
     Active Substance: AMLODIPINE BESYLATE
     Dosage: UNK, INITIALLY DISCONTINUED AND THEN RESTARTED
  7. AMLODIPINE [Suspect]
     Active Substance: AMLODIPINE BESYLATE
     Dosage: UNK, INITIALLY DISCONTINUED AND THEN RESTARTED
  8. AMLODIPINE [Suspect]
     Active Substance: AMLODIPINE BESYLATE
     Dosage: UNK, INITIALLY DISCONTINUED AND THEN RESTARTED
     Route: 065
  9. HYDRALAZINE [Suspect]
     Active Substance: HYDRALAZINE HYDROCHLORIDE
     Indication: Hypertension
     Dosage: 3200 MILLIGRAM
     Route: 048
  10. HYDRALAZINE [Suspect]
     Active Substance: HYDRALAZINE HYDROCHLORIDE
     Dosage: 3200 MILLIGRAM
     Route: 061
  11. HYDRALAZINE [Suspect]
     Active Substance: HYDRALAZINE HYDROCHLORIDE
     Dosage: 3200 MILLIGRAM
     Route: 061
  12. HYDRALAZINE [Suspect]
     Active Substance: HYDRALAZINE HYDROCHLORIDE
     Dosage: 3200 MILLIGRAM
     Route: 048
  13. HYDRALAZINE [Suspect]
     Active Substance: HYDRALAZINE HYDROCHLORIDE
     Dosage: UNK, INITIALLY DISCONTINUED AND THEN RESTARTED
     Route: 048
  14. HYDRALAZINE [Suspect]
     Active Substance: HYDRALAZINE HYDROCHLORIDE
     Dosage: UNK, INITIALLY DISCONTINUED AND THEN RESTARTED
     Route: 061
  15. HYDRALAZINE [Suspect]
     Active Substance: HYDRALAZINE HYDROCHLORIDE
     Dosage: UNK, INITIALLY DISCONTINUED AND THEN RESTARTED
     Route: 061
  16. HYDRALAZINE [Suspect]
     Active Substance: HYDRALAZINE HYDROCHLORIDE
     Dosage: UNK, INITIALLY DISCONTINUED AND THEN RESTARTED
     Route: 048
  17. PERINDOPRIL [Suspect]
     Active Substance: PERINDOPRIL
     Indication: Hypertension
     Dosage: UNK
     Route: 065
  18. PERINDOPRIL [Suspect]
     Active Substance: PERINDOPRIL
     Dosage: UNK
  19. PERINDOPRIL [Suspect]
     Active Substance: PERINDOPRIL
     Dosage: UNK
  20. PERINDOPRIL [Suspect]
     Active Substance: PERINDOPRIL
     Dosage: UNK
     Route: 065
  21. PERINDOPRIL [Suspect]
     Active Substance: PERINDOPRIL
     Dosage: UNK, INITIALLY DISCONTINUED AND THEN RESTARTED
     Route: 065
  22. PERINDOPRIL [Suspect]
     Active Substance: PERINDOPRIL
     Dosage: UNK, INITIALLY DISCONTINUED AND THEN RESTARTED
  23. PERINDOPRIL [Suspect]
     Active Substance: PERINDOPRIL
     Dosage: UNK, INITIALLY DISCONTINUED AND THEN RESTARTED
  24. PERINDOPRIL [Suspect]
     Active Substance: PERINDOPRIL
     Dosage: UNK, INITIALLY DISCONTINUED AND THEN RESTARTED
     Route: 065
  25. DROPERIDOL [Suspect]
     Active Substance: DROPERIDOL
     Indication: Behaviour disorder
     Dosage: 20 MILLIGRAM
  26. DROPERIDOL [Suspect]
     Active Substance: DROPERIDOL
     Dosage: 20 MILLIGRAM
     Route: 030
  27. DROPERIDOL [Suspect]
     Active Substance: DROPERIDOL
     Dosage: 20 MILLIGRAM
     Route: 030
  28. DROPERIDOL [Suspect]
     Active Substance: DROPERIDOL
     Dosage: 20 MILLIGRAM
  29. KETAMINE [Concomitant]
     Active Substance: KETAMINE
     Indication: Behaviour disorder
     Dosage: 200 MILLIGRAM
  30. KETAMINE [Concomitant]
     Active Substance: KETAMINE
     Dosage: 200 MILLIGRAM
     Route: 030
  31. KETAMINE [Concomitant]
     Active Substance: KETAMINE
     Dosage: 200 MILLIGRAM
     Route: 030
  32. KETAMINE [Concomitant]
     Active Substance: KETAMINE
     Dosage: 200 MILLIGRAM

REACTIONS (7)
  - Suicide attempt [Recovering/Resolving]
  - Overdose [Recovering/Resolving]
  - Toxicity to various agents [Recovering/Resolving]
  - Hypotension [Recovering/Resolving]
  - Distributive shock [Recovering/Resolving]
  - Acute kidney injury [Recovering/Resolving]
  - Metabolic acidosis [Recovering/Resolving]
